FAERS Safety Report 6583237-5 (Version None)
Quarter: 2010Q1

REPORT INFORMATION
  Report Type: 
  Country: None (occurrence: None)
  Receive Date: 20100216
  Receipt Date: 20100205
  Transmission Date: 20100710
  Serious: Yes (Death, Other)
  Sender: FDA-Public Use
  Company Number: US-BAXTER-2009BH001864

PATIENT
  Sex: Male

DRUGS (3)
  1. HEPARIN SODIUM INJECTION [Suspect]
     Indication: PROPHYLAXIS
     Route: 065
     Dates: start: 20080101
  2. HEPARIN SODIUM INJECTION [Suspect]
     Route: 065
     Dates: start: 20080101
  3. HEPARIN SODIUM INJECTION [Suspect]
     Indication: PERITONEAL DIALYSIS
     Route: 065
     Dates: start: 20080101

REACTIONS (2)
  - ANGIOPATHY [None]
  - CARDIAC DISORDER [None]
